FAERS Safety Report 25367485 (Version 1)
Quarter: 2025Q2

REPORT INFORMATION
  Report Type: Spontaneous
  Country: US (occurrence: US)
  Receive Date: 20250528
  Receipt Date: 20250528
  Transmission Date: 20250716
  Serious: Yes (Other)
  Sender: CATALYST PHARMA
  Company Number: US-CATALYSTPHARMACEUTICALPARTNERS-US-CATA-25-00740

PATIENT
  Age: 40 Year
  Sex: Female

DRUGS (1)
  1. FYCOMPA [Suspect]
     Active Substance: PERAMPANEL
     Indication: Product used for unknown indication
     Dosage: 1 TABLET EVERY NIGHT AT BEDTIME
     Route: 048

REACTIONS (2)
  - Generalised tonic-clonic seizure [Unknown]
  - Product use issue [Unknown]

NARRATIVE: CASE EVENT DATE: 20250520
